FAERS Safety Report 6886322-3 (Version None)
Quarter: 2010Q3

REPORT INFORMATION
  Report Type: 
  Country: None (occurrence: None)
  Receive Date: 20100729
  Receipt Date: 20080129
  Transmission Date: 20110219
  Serious: Yes (Other)
  Sender: FDA-Public Use
  Company Number: US-PFIZER INC-2007102402

PATIENT
  Sex: Female
  Weight: 120.2 kg

DRUGS (15)
  1. CELEBREX [Suspect]
     Indication: OSTEOARTHRITIS
     Route: 048
     Dates: start: 20040301, end: 20071113
  2. VYTORIN [Concomitant]
  3. TEVETEN HCT [Concomitant]
  4. CLONIDINE [Concomitant]
  5. TOPROL-XL [Concomitant]
  6. ALTACE [Concomitant]
  7. ASPIRIN [Concomitant]
  8. CALCIUM WITH VITAMIN D [Concomitant]
  9. LORATADINE [Concomitant]
  10. NIASPAN [Concomitant]
  11. TRAMADOL HYDROCHLORIDE [Concomitant]
  12. TIAZAC [Concomitant]
  13. LASIX [Concomitant]
  14. FISH OIL [Concomitant]
  15. CLOBETASOL PROPIONATE [Concomitant]

REACTIONS (3)
  - DRUG INEFFECTIVE [None]
  - GASTROOESOPHAGEAL REFLUX DISEASE [None]
  - RENAL FAILURE CHRONIC [None]
